FAERS Safety Report 6933041-0 (Version None)
Quarter: 2010Q3

REPORT INFORMATION
  Report Type: 
  Country: None (occurrence: None)
  Receive Date: 20100818
  Receipt Date: 20100818
  Transmission Date: 20110219
  Serious: Yes (Hospitalization)
  Sender: FDA-Public Use
  Company Number: None

PATIENT
  Sex: Male
  Weight: 11.8 kg

DRUGS (7)
  1. CYCLOPHOSPHAMIDE [Suspect]
     Dosage: 570 MG
  2. CYTARABINE [Suspect]
     Dosage: 50 MG
  3. DEXAMETHASONE [Suspect]
     Dosage: 1.6 MG
  4. MERCAPTOPURINE [Suspect]
     Dosage: 1.6 MG
  5. METHOTREXATE [Suspect]
     Dosage: 34 MG
  6. PEG-L- ASPARAGINASE (PEGASPARGASE, ONCOSPAR) [Suspect]
     Dosage: 1350 UNIT
  7. VINCRISTINE SULFATE [Suspect]
     Dosage: .8 MG

REACTIONS (2)
  - ACUTE RESPIRATORY DISTRESS SYNDROME [None]
  - PNEUMOCYSTIS JIROVECI PNEUMONIA [None]
